FAERS Safety Report 5741077-0 (Version None)
Quarter: 2008Q2

REPORT INFORMATION
  Report Type: 
  Country: None (occurrence: None)
  Receive Date: 20080516
  Receipt Date: 20080505
  Transmission Date: 20081010
  Serious: Yes (Disabling, Other)
  Sender: FDA-Public Use
  Company Number: GB-PFIZER INC-2008039630

PATIENT
  Age: 52 Year
  Sex: Female
  Weight: 75 kg

DRUGS (1)
  1. CHANTIX [Suspect]
     Route: 048
     Dates: start: 20080104, end: 20080331

REACTIONS (4)
  - DEPRESSED MOOD [None]
  - DEPRESSION [None]
  - HYPERHIDROSIS [None]
  - PANIC DISORDER [None]
